FAERS Safety Report 11287473 (Version 2)
Quarter: 2015Q3

REPORT INFORMATION
  Report Type: Report from Study
  Country: CA (occurrence: CA)
  Receive Date: 20150721
  Receipt Date: 20150821
  Transmission Date: 20151125
  Serious: Yes (Other)
  Sender: FDA-Public Use
  Company Number: PHHY2014CA073460

PATIENT
  Age: 50 Year
  Sex: Male
  Weight: 73 kg

DRUGS (1)
  1. EXTAVIA [Suspect]
     Active Substance: INTERFERON BETA-1B
     Indication: RELAPSING-REMITTING MULTIPLE SCLEROSIS
     Dosage: 8 MIU, QOD
     Route: 058
     Dates: start: 20140608

REACTIONS (15)
  - Delirium [Unknown]
  - Sluggishness [Recovered/Resolved]
  - Feeling cold [Unknown]
  - Bradyphrenia [Unknown]
  - Chills [Unknown]
  - Vertigo [Unknown]
  - Feeling abnormal [Unknown]
  - Burning sensation [Unknown]
  - Disorientation [Unknown]
  - Influenza like illness [Unknown]
  - Dizziness [Unknown]
  - Hangover [Unknown]
  - Insomnia [Unknown]
  - Pain [Unknown]
  - Pyrexia [Unknown]

NARRATIVE: CASE EVENT DATE: 20140608
